FAERS Safety Report 17494062 (Version 1)
Quarter: 2020Q1

REPORT INFORMATION
  Report Type: Spontaneous
  Country: US (occurrence: US)
  Receive Date: 20200304
  Receipt Date: 20200304
  Transmission Date: 20200409
  Serious: Yes (Death, Hospitalization)
  Sender: FDA-Public Use
  Company Number: US-TEVA-2020-US-1193379

PATIENT
  Age: 75 Year
  Sex: Female

DRUGS (4)
  1. LEUCOVORIN. [Suspect]
     Active Substance: LEUCOVORIN
     Route: 065
  2. METOLAZONE. [Suspect]
     Active Substance: METOLAZONE
     Route: 065
  3. METHOTREXATE. [Suspect]
     Active Substance: METHOTREXATE
     Dosage: 2.5 MILLIGRAM DAILY; FOR 14 DAYS
     Route: 048
  4. FILGRASTIM [Suspect]
     Active Substance: FILGRASTIM
     Route: 065

REACTIONS (10)
  - Sepsis [Fatal]
  - Bradycardia [Fatal]
  - Cardiac arrest [Fatal]
  - Respiratory distress [Fatal]
  - Hypoxia [Fatal]
  - Wrong product administered [Unknown]
  - Drug ineffective [Unknown]
  - Hypotension [Fatal]
  - Pancytopenia [Fatal]
  - Gastrointestinal haemorrhage [Fatal]
